FAERS Safety Report 20599692 (Version 1)
Quarter: 2022Q1

REPORT INFORMATION
  Report Type: Spontaneous
  Country: MY (occurrence: MY)
  Receive Date: 20220316
  Receipt Date: 20220316
  Transmission Date: 20220423
  Serious: Yes (Other)
  Sender: FDA-Public Use
  Company Number: MY-ABBVIE-22K-101-4317612-00

PATIENT
  Age: 2 Year
  Sex: Male

DRUGS (1)
  1. EPILIM [Suspect]
     Active Substance: VALPROATE SODIUM
     Indication: Epilepsy
     Dosage: (200 MG/5ML)
     Route: 048

REACTIONS (1)
  - Transaminases increased [Recovering/Resolving]
